FAERS Safety Report 8983967 (Version 1)
Quarter: 2012Q4

REPORT INFORMATION
  Report Type: Spontaneous
  Country: US (occurrence: None)
  Receive Date: 20121212
  Receipt Date: 20121212
  Transmission Date: 20130627
  Serious: Yes (Other)
  Sender: FDA-Public Use
  Company Number: AUR-APL-2012-05262

PATIENT
  Age: 90 Year
  Sex: Male

DRUGS (4)
  1. LEVETIRACETAM [Suspect]
     Indication: MYOCLONUS
     Dosage: (125 mg, 2 in 1 D)
  2. AMIODARONE [Suspect]
     Indication: ARRHYTHMIA
  3. CLONAZEPAM [Suspect]
     Indication: MYOCLONUS
  4. DIGOXIN (DIGOXIN) [Concomitant]

REACTIONS (8)
  - Myoclonus [None]
  - Somnolence [None]
  - Gait disturbance [None]
  - Fatigue [None]
  - Arrhythmia [None]
  - Disease recurrence [None]
  - Dysstasia [None]
  - Drug intolerance [None]
